FAERS Safety Report 8221667 (Version 2)
Quarter: 2014Q1

REPORT INFORMATION
  Report Type: Spontaneous
  Country: None (occurrence: None)
  Receive Date: 20111025
  Receipt Date: 20140220
  Transmission Date: 20141002
  Serious: Yes (Hospitalization)
  Sender: FDA-Public Use
  Company Number: AUR-APL-2011-05522

PATIENT
  Age: 75 Year
  Sex: Female
  Weight: 96 kg

DRUGS (12)
  1. AMOXICILLIN [Suspect]
     Indication: LOWER RESPIRATORY TRACT INFECTION
     Dosage: 750 MG (250 MG, 3 IN 1 D), ORAL
     Route: 048
     Dates: start: 20110930, end: 20111002
  2. RISPERIDONE [Suspect]
     Indication: AGITATION
     Dosage: 2 MG (1 MG, 2 IN 1 D), ORAL
     Route: 048
     Dates: start: 20110929, end: 20111002
  3. IRBESARTAN [Suspect]
     Indication: HYPERTENSION
     Dosage: 150 MG (150 MG, 1 IN 1 D), ORAL
     Route: 048
     Dates: start: 20100513, end: 20111002
  4. BENDROFLUMETHIAZIDE (BENDROFLUMETHIAZIDE) [Concomitant]
  5. CHLORPHENIRAMINE MALEATE [Concomitant]
  6. CITALOPRAM HYDROBROMIDE [Concomitant]
  7. CLOPIDOGREL [Concomitant]
  8. COSOPT (COSOPT) [Concomitant]
  9. LATANOPROST [Concomitant]
  10. LORATIDINE [Concomitant]
  11. MOVICOL [Concomitant]
  12. TRAMACET (ULTRACET) [Concomitant]

REACTIONS (3)
  - Angioedema [None]
  - Lower respiratory tract infection [None]
  - Agitation [None]
